FAERS Safety Report 13641912 (Version 1)
Quarter: 2017Q2

REPORT INFORMATION
  Report Type: Spontaneous
  Country: US (occurrence: US)
  Receive Date: 20170609
  Receipt Date: 20170609
  Transmission Date: 20170830
  Serious: Yes (Hospitalization)
  Sender: FDA-Public Use
  Company Number: None

PATIENT
  Age: 59 Year
  Sex: Male
  Weight: 86.6 kg

DRUGS (2)
  1. WARFARIN [Suspect]
     Active Substance: WARFARIN
     Indication: FACTOR V LEIDEN MUTATION
     Dates: start: 19960101, end: 20170417
  2. WARFARIN [Suspect]
     Active Substance: WARFARIN
     Indication: DEEP VEIN THROMBOSIS
     Dates: start: 19960101, end: 20170417

REACTIONS (3)
  - Nausea [None]
  - Subdural haematoma [None]
  - Headache [None]

NARRATIVE: CASE EVENT DATE: 20170417
